FAERS Safety Report 7563110-6 (Version None)
Quarter: 2011Q2

REPORT INFORMATION
  Report Type: 
  Country: None (occurrence: None)
  Receive Date: 20110622
  Receipt Date: 20110610
  Transmission Date: 20111010
  Serious: Yes (Life-Threatening)
  Sender: FDA-Public Use
  Company Number: GB-JNJFOC-20110606702

PATIENT
  Age: 38 Year
  Sex: Female
  Weight: 78 kg

DRUGS (6)
  1. CHLORPROMAZINE [Concomitant]
  2. TRAMADOL HCL [Suspect]
     Indication: PEPTIC ULCER
     Route: 048
     Dates: start: 20110308, end: 20110509
  3. NEXIUM [Concomitant]
  4. ESCITALOPRAM [Interacting]
     Indication: PRODUCT USED FOR UNKNOWN INDICATION
     Route: 065
  5. ACETAMINOPHEN AND CODEINE PHOSPHATE [Concomitant]
  6. TRAMADOL HCL [Suspect]
     Indication: BILIARY COLIC
     Route: 048
     Dates: start: 20110308, end: 20110509

REACTIONS (3)
  - SYNCOPE [None]
  - CONVULSION [None]
  - DRUG INTERACTION [None]
